FAERS Safety Report 21267894 (Version 1)
Quarter: 2022Q3

REPORT INFORMATION
  Report Type: Spontaneous
  Country: US (occurrence: US)
  Receive Date: 20220829
  Receipt Date: 20220829
  Transmission Date: 20221026
  Serious: Yes (Other)
  Sender: FDA-Public Use
  Company Number: US-MALLINCKRODT-T202204409

PATIENT
  Sex: Female

DRUGS (1)
  1. STRATAGRAFT [Suspect]
     Active Substance: VIABLE AND METABOLICALLY ACTIVE ALLOGENEIC HUMAN NIKS KERATINOCYTES AND HUMAN DERMAL FIBROBLASTS CEL
     Indication: Thermal burn
     Dosage: UNK
     Route: 061
     Dates: start: 20220706

REACTIONS (3)
  - Wound infection staphylococcal [Unknown]
  - Application site infection [Unknown]
  - Treatment failure [Unknown]

NARRATIVE: CASE EVENT DATE: 20220101
